FAERS Safety Report 7462532-1 (Version None)
Quarter: 2011Q2

REPORT INFORMATION
  Report Type: 
  Country: None (occurrence: None)
  Receive Date: 20110506
  Receipt Date: 20110120
  Transmission Date: 20111010
  Serious: Yes (Other)
  Sender: FDA-Public Use
  Company Number: US-BAYER-201023632NA

PATIENT
  Age: 27 Year
  Sex: Female
  Weight: 53.061 kg

DRUGS (6)
  1. FIORICET [Concomitant]
  2. HYDROCODONE BITARTRATE [Concomitant]
  3. NAPROXEN [Concomitant]
  4. YAZ [Suspect]
     Indication: PRODUCT USED FOR UNKNOWN INDICATION
     Route: 048
     Dates: start: 20061101, end: 20091001
  5. FAMOTIDINE [Concomitant]
  6. TRAMADOL [Concomitant]

REACTIONS (2)
  - CHOLECYSTITIS CHRONIC [None]
  - CHOLELITHIASIS [None]
